FAERS Safety Report 4542480-7 (Version None)
Quarter: 2004Q4

REPORT INFORMATION
  Report Type: 
  Country: None (occurrence: None)
  Receive Date: 20041227
  Receipt Date: 20041215
  Transmission Date: 20050328
  Serious: Yes (Other)
  Sender: FDA-Public Use
  Company Number: 2004114932

PATIENT
  Age: 15 Year
  Sex: Male

DRUGS (4)
  1. GENOTROPIN [Suspect]
     Indication: HYPOPITUITARISM
     Dosage: 2 MG 14 MG WEEKLY (7 INJECTION/WEEK) SUBCUTANEOUS
     Route: 058
     Dates: start: 20031230, end: 20040717
  2. LEVOTHYROXINE SODIUM [Concomitant]
  3. DESMOPRESSIN (DESMOPRESSIN) [Concomitant]
  4. HYDROCORTISONE ACETATE(HYDROCORTISONE ACETATE) [Concomitant]

REACTIONS (2)
  - HEADACHE [None]
  - NEOPLASM GROWTH ACCELERATED [None]
